APPROVED DRUG PRODUCT: KETOPROFEN
Active Ingredient: KETOPROFEN
Strength: 50MG
Dosage Form/Route: CAPSULE;ORAL
Application: A074035 | Product #002
Applicant: RISING PHARMA HOLDING INC
Approved: Dec 31, 1996 | RLD: No | RS: No | Type: DISCN